FAERS Safety Report 24161802 (Version 1)
Quarter: 2024Q3

REPORT INFORMATION
  Report Type: Spontaneous
  Country: CA (occurrence: CA)
  Receive Date: 20240801
  Receipt Date: 20240801
  Transmission Date: 20241016
  Serious: Yes (Disabling, Other)
  Sender: Unknown Manufacturer
  Company Number: CA-862174955-ML2024-04216

PATIENT
  Age: 76 Year
  Sex: Female

DRUGS (12)
  1. DOXEPIN [Suspect]
     Active Substance: DOXEPIN
     Indication: Depression
     Dosage: AND OCCASIONAL EXTRA 50 MG FROM AN OLDER VIAL
  2. DOXEPIN [Suspect]
     Active Substance: DOXEPIN
     Indication: Anxiety
     Dosage: 9 SEPTEMBER: 100 MG IN THE MORNING AND 150 MG AT BEDTIME (WITH NO EXTRA DOSES FROM HER OLDER VIAL).
  3. DOXEPIN [Suspect]
     Active Substance: DOXEPIN
     Dosage: 28 SEPTEMBER
  4. DOXEPIN [Suspect]
     Active Substance: DOXEPIN
     Dosage: 26 OCTOBER: DOSE REDUCED TO 50 MG IN THE MORNING AND 100 MG AT BEDTIME.
  5. DOXEPIN [Suspect]
     Active Substance: DOXEPIN
     Dosage: 29 OCTOBER: PATIENT HAD NAUSEA AND DECIDED TO STOP DOXEPIN.
  6. VENLAFAXINE [Suspect]
     Active Substance: VENLAFAXINE HYDROCHLORIDE
     Indication: Depression
     Dosage: 9 SEPTEMBER
  7. VENLAFAXINE [Suspect]
     Active Substance: VENLAFAXINE HYDROCHLORIDE
     Indication: Anxiety
     Dosage: 16 SEPTEMBER: DOSE REDUCED TO 337.5 MG DAILY.
  8. VENLAFAXINE [Suspect]
     Active Substance: VENLAFAXINE HYDROCHLORIDE
     Dosage: 23 SEPTEMBER: DOSE REDUCED TO 300 MG DAILY
  9. VENLAFAXINE [Suspect]
     Active Substance: VENLAFAXINE HYDROCHLORIDE
  10. FUROSEMIDE [Suspect]
     Active Substance: FUROSEMIDE
     Indication: Urinary retention
  11. FUROSEMIDE [Suspect]
     Active Substance: FUROSEMIDE
     Dosage: 29 SEPTEMBER: DOSE REDUCED TO 10 MG 3 TIMES WEEKLY
  12. FUROSEMIDE [Suspect]
     Active Substance: FUROSEMIDE

REACTIONS (5)
  - Cognitive disorder [Recovering/Resolving]
  - Urinary retention [Unknown]
  - Dizziness [Recovered/Resolved]
  - Tremor [Recovered/Resolved]
  - Intentional product misuse [Unknown]
